FAERS Safety Report 7455302-1 (Version None)
Quarter: 2011Q2

REPORT INFORMATION
  Report Type: 
  Country: None (occurrence: None)
  Receive Date: 20110503
  Receipt Date: 20110419
  Transmission Date: 20111010
  Serious: Yes (Hospitalization, Other)
  Sender: FDA-Public Use
  Company Number: US-BRISTOL-MYERS SQUIBB COMPANY-15682750

PATIENT
  Age: 57 Year
  Sex: Male
  Weight: 117 kg

DRUGS (2)
  1. BEVACIZUMAB [Suspect]
     Indication: RENAL CELL CARCINOMA
     Dosage: CYCLE8:16FEB11(LAST DOSE),CYCLE9 WAS STARTED ON 16MAR2011.CYCLE:21D,15MG/KG OVER 30-90 MIN ON DAY1
     Route: 042
     Dates: start: 20100916
  2. IXEMPRA KIT [Suspect]
     Indication: RENAL CELL CARCINOMA
     Dosage: CYCLE8 20FEB11(LAST DOSE),CYCLE9:16MAR2011.CYCLE:21D,6MG/M2/D OVER 1 HR ON DAYS 1-5
     Route: 042
     Dates: start: 20100916

REACTIONS (4)
  - SYNCOPE [None]
  - ORTHOSTATIC HYPOTENSION [None]
  - PRESYNCOPE [None]
  - AUTONOMIC NEUROPATHY [None]
